FAERS Safety Report 19982536 (Version 1)
Quarter: 2021Q4

REPORT INFORMATION
  Report Type: Spontaneous
  Country: CZ (occurrence: CZ)
  Receive Date: 20211022
  Receipt Date: 20211022
  Transmission Date: 20220303
  Serious: Yes (Hospitalization)
  Sender: FDA-Public Use
  Company Number: CZ-MACLEODS PHARMACEUTICALS US LTD-MAC2017004668

PATIENT

DRUGS (2)
  1. OLANZAPINE [Suspect]
     Active Substance: OLANZAPINE
     Indication: Schizophrenia
     Dosage: 10 MILLIGRAM, BID, TOTAL DOSAGE OF 30 MG FOR 2 DAYS
     Route: 030
  2. CLONAZEPAM [Concomitant]
     Active Substance: CLONAZEPAM
     Indication: Schizophrenia
     Dosage: UNK
     Route: 030

REACTIONS (2)
  - Lipase increased [Recovered/Resolved]
  - Amylase increased [Recovered/Resolved]
